FAERS Safety Report 20457732 (Version 9)
Quarter: 2022Q4

REPORT INFORMATION
  Report Type: Report from Study
  Country: US (occurrence: US)
  Receive Date: 20220210
  Receipt Date: 20221031
  Transmission Date: 20230113
  Serious: Yes (Hospitalization, Other)
  Sender: FDA-Public Use
  Company Number: US-NOVARTISTESTPH-NVSC2022US028616

PATIENT
  Sex: Female

DRUGS (1)
  1. ADAKVEO [Suspect]
     Active Substance: CRIZANLIZUMAB-TMCA
     Indication: Sickle cell disease
     Dosage: UNK, QMO
     Route: 042
     Dates: start: 20210821

REACTIONS (13)
  - Cerebrovascular accident [Unknown]
  - Sickle cell anaemia with crisis [Unknown]
  - Cerebrovascular accident [Recovered/Resolved with Sequelae]
  - Hemiparesis [Not Recovered/Not Resolved]
  - Dysarthria [Not Recovered/Not Resolved]
  - Full blood count decreased [Unknown]
  - Gait disturbance [Unknown]
  - Anxiety [Unknown]
  - Depression [Unknown]
  - Pain [Recovering/Resolving]
  - Dysphonia [Unknown]
  - Back pain [Recovering/Resolving]
  - Arthralgia [Recovering/Resolving]
